FAERS Safety Report 8798958 (Version 1)
Quarter: 2012Q4

REPORT INFORMATION
  Report Type: Spontaneous
  Country: US (occurrence: None)
  Receive Date: 20120918
  Receipt Date: 20120918
  Transmission Date: 20130627
  Serious: Yes (Other)
  Sender: FDA-Public Use
  Company Number: None

PATIENT
  Age: 72 Year
  Sex: Male
  Weight: 84.1 kg

DRUGS (1)
  1. PROMETHAZINE WITH CODEINE [Suspect]
     Dosage: one teaspoon once oral
     Route: 048

REACTIONS (2)
  - Cough [None]
  - Sleep disorder due to general medical condition, insomnia type [None]
